FAERS Safety Report 6122356-4 (Version None)
Quarter: 2009Q1

REPORT INFORMATION
  Report Type: 
  Country: None (occurrence: None)
  Receive Date: 20090318
  Receipt Date: 20090123
  Transmission Date: 20090719
  Serious: Yes (Hospitalization)
  Sender: FDA-Public Use
  Company Number: US-BRISTOL-MYERS SQUIBB COMPANY-14544381

PATIENT
  Age: 80 Year
  Sex: Female
  Weight: 70 kg

DRUGS (10)
  1. CETUXIMAB [Suspect]
     Indication: NON-SMALL CELL LUNG CANCER
     Route: 042
     Dates: start: 20081016, end: 20081030
  2. PACLITAXEL [Suspect]
     Indication: NON-SMALL CELL LUNG CANCER
     Route: 042
     Dates: start: 20081016, end: 20081016
  3. CARBOPLATIN [Suspect]
     Indication: NON-SMALL CELL LUNG CANCER
     Route: 042
     Dates: start: 20081016, end: 20081016
  4. BEVACIZUMAB [Suspect]
     Indication: NON-SMALL CELL LUNG CANCER
     Route: 042
     Dates: start: 20081023, end: 20081023
  5. HYDROCODONE [Concomitant]
     Route: 065
     Dates: start: 20080915
  6. COMPAZINE [Concomitant]
     Route: 065
     Dates: start: 20081016
  7. DOXYCYCLINE [Concomitant]
     Route: 065
     Dates: start: 20081016
  8. SOTALOL HYDROCHLORIDE [Concomitant]
     Route: 065
  9. TYLENOL [Concomitant]
     Route: 065
     Dates: start: 19980101
  10. XANAX [Concomitant]
     Route: 065
     Dates: start: 20080924

REACTIONS (3)
  - ATRIAL FIBRILLATION [None]
  - NAUSEA [None]
  - VOMITING [None]
